FAERS Safety Report 10932252 (Version 5)
Quarter: 2024Q3

REPORT INFORMATION
  Report Type: Spontaneous
  Country: US (occurrence: US)
  Receive Date: 20150320
  Receipt Date: 20240723
  Transmission Date: 20241017
  Serious: Yes (Other)
  Sender: JOHNSON AND JOHNSON
  Company Number: US-JNJFOC-20150118645

PATIENT
  Sex: Male

DRUGS (3)
  1. RISPERDAL [Suspect]
     Active Substance: RISPERIDONE
     Indication: Panic attack
     Dosage: 1 TO 1.5 MG DAILY
     Route: 048
     Dates: start: 1997, end: 19980102
  2. RISPERDAL [Suspect]
     Active Substance: RISPERIDONE
     Indication: Thinking abnormal
  3. RISPERIDONE [Suspect]
     Active Substance: RISPERIDONE
     Indication: Psychotic disorder
     Route: 065

REACTIONS (5)
  - Gynaecomastia [Unknown]
  - Weight increased [Recovering/Resolving]
  - Emotional distress [Unknown]
  - Secondary hypogonadism [Unknown]
  - Off label use [Unknown]

NARRATIVE: CASE EVENT DATE: 19970101
